FAERS Safety Report 7811295-6 (Version None)
Quarter: 2011Q4

REPORT INFORMATION
  Report Type: 
  Country: None (occurrence: None)
  Receive Date: 20111013
  Receipt Date: 20111011
  Transmission Date: 20120403
  Serious: No
  Sender: FDA-Public Use
  Company Number: US-B.I. PHARMACEUTICALS,INC./RIDGEFIELD-2011-BP-19996BP

PATIENT
  Sex: Male

DRUGS (13)
  1. CALCIUM CARBONATE [Concomitant]
  2. VIT B1 [Concomitant]
  3. ZOCOR [Concomitant]
     Indication: BLOOD CHOLESTEROL INCREASED
     Dosage: 40 MG
     Route: 048
  4. GLIMEPIRIDE [Concomitant]
     Indication: DIABETES MELLITUS
     Dosage: 1 MG
     Route: 048
  5. AZELASTINE HCL [Concomitant]
  6. PRADAXA [Suspect]
     Indication: ATRIAL FIBRILLATION
     Dosage: 150 MG
     Route: 048
     Dates: start: 20110801, end: 20110815
  7. METFORMIN HYDROCHLORIDE [Concomitant]
     Indication: DIABETES MELLITUS
     Dosage: 500 MG
     Route: 048
  8. VIT D3 [Concomitant]
  9. DILTIAZEM HCL [Concomitant]
     Indication: ATRIAL FIBRILLATION
     Route: 048
  10. COD LIVER OIL [Concomitant]
  11. XALATAN [Concomitant]
     Indication: SLEEP APNOEA SYNDROME
     Route: 045
  12. MULTI-VITAMIN [Concomitant]
     Indication: THROMBOCYTOPENIA
     Route: 048
  13. CHROMIN PICOLINATE [Concomitant]

REACTIONS (8)
  - NAUSEA [None]
  - HEADACHE [None]
  - FLATULENCE [None]
  - DYSPEPSIA [None]
  - DIARRHOEA [None]
  - ABDOMINAL PAIN [None]
  - DYSPHAGIA [None]
  - DIZZINESS [None]
